FAERS Safety Report 25152696 (Version 1)
Quarter: 2025Q2

REPORT INFORMATION
  Report Type: Report from Study
  Country: CA (occurrence: CA)
  Receive Date: 20250403
  Receipt Date: 20250403
  Transmission Date: 20250716
  Serious: Yes (Other)
  Sender: ABBVIE
  Company Number: CA-ABBVIE-6203681

PATIENT
  Sex: Male

DRUGS (1)
  1. RINVOQ [Suspect]
     Active Substance: UPADACITINIB
     Indication: Dermatitis atopic
     Dosage: DOSE STRENGTH:30 MG
     Route: 048

REACTIONS (4)
  - Systemic lupus erythematosus [Unknown]
  - Peripheral swelling [Unknown]
  - Limb discomfort [Unknown]
  - Eczema [Recovering/Resolving]
